FAERS Safety Report 10911327 (Version 2)
Quarter: 2020Q3

REPORT INFORMATION
  Report Type: Other
  Country: CA (occurrence: CA)
  Receive Date: 20150313
  Receipt Date: 20200806
  Transmission Date: 20201102
  Serious: Yes (Death, Hospitalization)
  Sender: FDA-Public Use
  Company Number: CA-ROCHE-1524299

PATIENT
  Sex: Female

DRUGS (3)
  1. LANTUS [Concomitant]
     Active Substance: INSULIN GLARGINE
  2. RITUXAN [Suspect]
     Active Substance: RITUXIMAB
     Indication: BONE MARROW TRANSPLANT
  3. RITUXAN [Suspect]
     Active Substance: RITUXIMAB
     Indication: GRAFT VERSUS HOST DISEASE
     Dosage: DOSING DETAILS UNKNOWN, NO PIRS RECEIVED
     Route: 042
     Dates: start: 20141128, end: 20141219

REACTIONS (5)
  - Disease progression [Fatal]
  - Off label use [Unknown]
  - Sepsis [Fatal]
  - Vascular device infection [Unknown]
  - Intentional product use issue [Unknown]

NARRATIVE: CASE EVENT DATE: 2015
